FAERS Safety Report 4597548-6 (Version None)
Quarter: 2005Q1

REPORT INFORMATION
  Report Type: 
  Country: None (occurrence: None)
  Receive Date: 20050303
  Receipt Date: 20050225
  Transmission Date: 20050727
  Serious: Yes (Hospitalization)
  Sender: FDA-Public Use
  Company Number: PHRM2005FR00928

PATIENT
  Age: 53 Year
  Sex: Male

DRUGS (2)
  1. SANDIMMUNE [Suspect]
     Indication: PSORIASIS
     Route: 048
     Dates: start: 19960713
  2. CORTICOSTEROIDS [Concomitant]
     Indication: PSORIASIS

REACTIONS (1)
  - OSTEOPOROSIS [None]
